FAERS Safety Report 9523064 (Version 1)
Quarter: 2013Q1

REPORT INFORMATION
  Report Type: Spontaneous
  Country: US (occurrence: None)
  Receive Date: 20130305
  Receipt Date: 20130305
  Transmission Date: 20140127
  Serious: No
  Sender: FDA-Public Use
  Company Number: 163-21880-12031943

PATIENT
  Age: 84 Year
  Sex: Male
  Weight: 70.76 kg

DRUGS (14)
  1. REVLIMID [Suspect]
     Indication: MYELODYSPLASTIC SYNDROME
     Dates: start: 20110524
  2. BENADRYL [Suspect]
     Indication: RASH
     Route: 048
  3. CLARITIN (LORATADINE) [Suspect]
     Indication: RASH
     Dosage: PO
  4. CEPHALOSPORIN [Suspect]
     Indication: PRODUCT USED FOR UNKNOWN INDICATION
     Dosage: UNK
  5. SODIUM FLUORIDE [Suspect]
     Indication: PRODUCT USED FOR UNKNOWN INDICATION
     Dosage: UNK
  6. CARAFATE  (SUCRALFATE) [Concomitant]
  7. FOLIC ACID (FOLIC ACID) [Concomitant]
  8. LOPERAMIDE (LOPERAMIDE) [Concomitant]
  9. MORPHINE [Concomitant]
  10. RANITIDINE (RANITIDINE) [Concomitant]
  11. VICODINE (VICODINE) [Concomitant]
  12. VITAMIN B 12 (CYANOCOBALAMIN) [Concomitant]
  13. VITAMIN D (ERGOCALCIFEROL) [Concomitant]
  14. GEL-KAM (STANNOUS FLUORIDE) (GEL) [Concomitant]

REACTIONS (3)
  - Rash generalised [None]
  - Dry mouth [None]
  - Urinary tract infection [None]
